FAERS Safety Report 9437436 (Version 1)
Quarter: 2013Q3

REPORT INFORMATION
  Report Type: Spontaneous
  Country: US (occurrence: US)
  Receive Date: 20130802
  Receipt Date: 20130802
  Transmission Date: 20140515
  Serious: Yes (Hospitalization)
  Sender: FDA-Public Use
  Company Number: US-SANOFI-AVENTIS-2013SA076737

PATIENT
  Age: 64 Year
  Sex: Male

DRUGS (3)
  1. LASIX [Suspect]
     Indication: PRODUCT USED FOR UNKNOWN INDICATION
     Route: 065
  2. REVLIMID [Concomitant]
     Indication: PLASMA CELL MYELOMA
     Dosage: DOSE: 25 MG (14 IN 21 DAYS)
     Route: 048
     Dates: start: 20130226
  3. REVLIMID [Concomitant]
     Indication: PLASMA CELL MYELOMA
     Route: 048
     Dates: start: 201305

REACTIONS (4)
  - Fluid retention [Unknown]
  - Abdominal discomfort [Unknown]
  - Muscle spasms [Unknown]
  - Blood potassium decreased [Recovered/Resolved]
